FAERS Safety Report 24425102 (Version 2)
Quarter: 2025Q1

REPORT INFORMATION
  Report Type: Report from Study
  Country: US (occurrence: US)
  Receive Date: 20241010
  Receipt Date: 20250122
  Transmission Date: 20250409
  Serious: No
  Sender: SANDOZ
  Company Number: US-SANDOZ-SDZ2024US086267

PATIENT
  Sex: Male

DRUGS (2)
  1. OMNITROPE [Suspect]
     Active Substance: SOMATROPIN
     Indication: Short stature
     Dosage: 2 MG (MILLIGRAM) ONCE DAILY
     Route: 058
  2. OMNITROPE [Suspect]
     Active Substance: SOMATROPIN
     Indication: Short stature
     Dosage: 2 MG (MILLIGRAM) ONCE DAILY
     Route: 058

REACTIONS (3)
  - Injection site discharge [Unknown]
  - Incorrect dose administered [Unknown]
  - Exposure via skin contact [Unknown]
